FAERS Safety Report 5368880-3 (Version None)
Quarter: 2007Q2

REPORT INFORMATION
  Report Type: 
  Country: None (occurrence: None)
  Receive Date: 20070621
  Receipt Date: 20070621
  Transmission Date: 20071010
  Serious: No
  Sender: FDA-Public Use
  Company Number: None

PATIENT
  Age: 41 Year
  Sex: Male

DRUGS (1)
  1. TYLENOL W/ CODEINE NO. 3 [Suspect]
     Indication: DENTAL TREATMENT
     Dosage: TWO TABLETS QID PO
     Route: 048
     Dates: start: 20070409, end: 20070410

REACTIONS (2)
  - NAUSEA [None]
  - VOMITING [None]
